FAERS Safety Report 12247909 (Version 2)
Quarter: 2016Q3

REPORT INFORMATION
  Report Type: Spontaneous
  Country: US (occurrence: US)
  Receive Date: 20160408
  Receipt Date: 20160802
  Transmission Date: 20161109
  Serious: Yes (Hospitalization, Other)
  Sender: FDA-Public Use
  Company Number: PHEH2016US008556

PATIENT
  Sex: Male
  Weight: 65.9 kg

DRUGS (1)
  1. ENTRESTO [Suspect]
     Active Substance: SACUBITRIL\VALSARTAN
     Indication: CARDIAC FAILURE CHRONIC
     Dosage: 50 MG, UNK
     Route: 048
     Dates: start: 20160209, end: 20160216

REACTIONS (4)
  - Blood urea increased [Recovered/Resolved]
  - Pleural effusion [Not Recovered/Not Resolved]
  - Blood creatinine increased [Recovered/Resolved]
  - Oedema [Not Recovered/Not Resolved]
